FAERS Safety Report 12949837 (Version 1)
Quarter: 2016Q4

REPORT INFORMATION
  Report Type: Spontaneous
  Country: US (occurrence: US)
  Receive Date: 20161116
  Receipt Date: 20161116
  Transmission Date: 20170207
  Serious: Yes (Hospitalization, Disabling)
  Sender: FDA-Public Use
  Company Number: None

PATIENT
  Age: 56 Year
  Sex: Female
  Weight: 115.9 kg

DRUGS (2)
  1. INVOKANA [Suspect]
     Active Substance: CANAGLIFLOZIN
     Indication: DIABETIC NEUROPATHY
     Dates: start: 20160508
  2. JARDIANCE [Suspect]
     Active Substance: EMPAGLIFLOZIN
     Indication: TYPE 2 DIABETES MELLITUS
     Dates: start: 20160628

REACTIONS (6)
  - Gangrene [None]
  - Skin ulcer [None]
  - Infection [None]
  - Osteomyelitis [None]
  - Pyrexia [None]
  - Toe amputation [None]

NARRATIVE: CASE EVENT DATE: 20161026
